FAERS Safety Report 23760081 (Version 1)
Quarter: 2024Q2

REPORT INFORMATION
  Report Type: Spontaneous
  Country: US (occurrence: US)
  Receive Date: 20240419
  Receipt Date: 20240419
  Transmission Date: 20240716
  Serious: Yes (Hospitalization)
  Sender: FDA-Public Use
  Company Number: US-NOVOPROD-1204474

PATIENT
  Sex: Male

DRUGS (1)
  1. RYBELSUS [Suspect]
     Active Substance: SEMAGLUTIDE
     Indication: Type 2 diabetes mellitus
     Dosage: 3 MG, QD
     Route: 048
     Dates: start: 202305

REACTIONS (7)
  - Myocardial infarction [Recovering/Resolving]
  - Mouth haemorrhage [Recovering/Resolving]
  - Cough [Recovering/Resolving]
  - Pneumonia [Recovering/Resolving]
  - Atrioventricular block [Recovering/Resolving]
  - Decreased appetite [Recovering/Resolving]
  - Wrong technique in product usage process [Recovering/Resolving]

NARRATIVE: CASE EVENT DATE: 20240101
